FAERS Safety Report 6679401-7 (Version None)
Quarter: 2010Q2

REPORT INFORMATION
  Report Type: 
  Country: None (occurrence: None)
  Receive Date: 20100413
  Receipt Date: 20100401
  Transmission Date: 20101027
  Serious: Yes (Other)
  Sender: FDA-Public Use
  Company Number: CA-ROCHE-695230

PATIENT
  Sex: Male
  Weight: 98 kg

DRUGS (11)
  1. TOCILIZUMAB [Suspect]
     Indication: RHEUMATOID ARTHRITIS
     Dosage: TEMPORARILY STOPPED.  DOSAGE FORM: INFUSION SOLUTION.  LAST DOSE PRIOR TO SAE: 02 DECEMBER 2009.
     Route: 042
     Dates: start: 20081217
  2. TOCILIZUMAB [Suspect]
     Dosage: IN MA21573 STUDY, FORM : VIAL
     Route: 042
  3. METHOTREXATE [Concomitant]
     Indication: RHEUMATOID ARTHRITIS
     Dosage: TOTAL DAILY DOSE: 25 MG/^WK^
     Route: 065
     Dates: start: 20060801
  4. REMICADE [Concomitant]
     Indication: RHEUMATOID ARTHRITIS
     Dosage: TOTAL DAILY DOSE: ^200.300 88 W^
     Route: 065
     Dates: start: 20030901, end: 20080918
  5. NEXIUM [Concomitant]
     Dates: start: 20080101
  6. FOLIC ACID [Concomitant]
     Dates: start: 20060101
  7. CALCIUM/VITAMIN D [Concomitant]
     Dates: start: 20060101
  8. GLUCOSAMINE SULFATE/CHONDROITIN [Concomitant]
     Dosage: DRUG NAME: GLUCOSAMINE+CHONDREITIN
     Dates: start: 20060101
  9. SULFASALAZINE [Concomitant]
     Dates: start: 20100205
  10. PLAQUENIL [Concomitant]
     Dates: start: 20100317
  11. PREDNISONE [Concomitant]
     Dates: start: 20100305

REACTIONS (1)
  - DYSTONIA [None]
